FAERS Safety Report 25034146 (Version 1)
Quarter: 2025Q1

REPORT INFORMATION
  Report Type: Spontaneous
  Country: FR (occurrence: FR)
  Receive Date: 20250304
  Receipt Date: 20250304
  Transmission Date: 20250408
  Serious: Yes (Hospitalization)
  Sender: ROCHE
  Company Number: None

PATIENT
  Age: 54 Year
  Sex: Female
  Weight: 66.5 kg

DRUGS (21)
  1. BACTRIM [Suspect]
     Active Substance: SULFAMETHOXAZOLE\TRIMETHOPRIM
     Indication: Antifungal prophylaxis
     Route: 048
     Dates: start: 20250113, end: 20250117
  2. CELLCEPT [Suspect]
     Active Substance: MYCOPHENOLATE MOFETIL
     Indication: Prophylaxis against transplant rejection
     Route: 065
     Dates: end: 20250120
  3. THYMOGLOBULINE [Suspect]
     Active Substance: LAPINE T-LYMPHOCYTE IMMUNE GLOBULIN
     Indication: Prophylaxis against transplant rejection
     Route: 065
     Dates: start: 20250113, end: 20250117
  4. PANTOPRAZOLE [Suspect]
     Active Substance: PANTOPRAZOLE
     Indication: Product used for unknown indication
     Route: 065
     Dates: start: 20250113, end: 20250119
  5. AMLODIPINE [Suspect]
     Active Substance: AMLODIPINE BESYLATE
     Indication: Product used for unknown indication
     Route: 065
     Dates: start: 20250114, end: 20250120
  6. IVERMECTIN [Suspect]
     Active Substance: IVERMECTIN
     Indication: Infestation
     Route: 065
     Dates: end: 20250116
  7. ACETAMINOPHEN [Suspect]
     Active Substance: ACETAMINOPHEN
     Indication: Pain
     Route: 065
     Dates: start: 20250115, end: 20250119
  8. ATORVASTATIN [Suspect]
     Active Substance: ATORVASTATIN
     Indication: Blood cholesterol
     Route: 065
     Dates: end: 20250120
  9. VALGANCICLOVIR [Concomitant]
     Active Substance: VALGANCICLOVIR
  10. PREDNISOLONE [Concomitant]
     Active Substance: PREDNISOLONE
  11. TACROLIMUS [Concomitant]
     Active Substance: TACROLIMUS
  12. NEBIVOLOL [Concomitant]
     Active Substance: NEBIVOLOL
  13. KARDEGIC [Concomitant]
     Active Substance: ASPIRIN DL-LYSINE
  14. AMPHOTERICIN B [Concomitant]
     Active Substance: AMPHOTERICIN B
  15. ZOPICLONE [Concomitant]
     Active Substance: ZOPICLONE
  16. ATOVAQUONE [Concomitant]
     Active Substance: ATOVAQUONE
  17. URAPIDIL [Concomitant]
     Active Substance: URAPIDIL
  18. ONDANSETRON [Concomitant]
     Active Substance: ONDANSETRON
  19. POLARAMINE [Concomitant]
     Active Substance: DEXCHLORPHENIRAMINE MALEATE
  20. GAVISCON [Concomitant]
     Active Substance: ALUMINUM HYDROXIDE\MAGNESIUM CARBONATE
  21. AUGMENTIN [Concomitant]
     Active Substance: AMOXICILLIN\CLAVULANATE POTASSIUM

REACTIONS (1)
  - Hepatocellular injury [Recovering/Resolving]

NARRATIVE: CASE EVENT DATE: 20250115
